FAERS Safety Report 24668821 (Version 1)
Quarter: 2024Q4

REPORT INFORMATION
  Report Type: Spontaneous
  Country: ES (occurrence: ES)
  Receive Date: 20241127
  Receipt Date: 20241127
  Transmission Date: 20250114
  Serious: Yes (Other)
  Sender: ALKEM
  Company Number: ES-ALKEM LABORATORIES LIMITED-ES-ALKEM-2024-22086

PATIENT
  Age: 42 Year
  Sex: Male

DRUGS (1)
  1. AMPHETAMINE SULFATE [Suspect]
     Active Substance: AMPHETAMINE SULFATE
     Indication: Product used for unknown indication
     Dosage: UNK
     Route: 065

REACTIONS (3)
  - Cardiomyopathy [Unknown]
  - Substance use [Unknown]
  - Prescription drug used without a prescription [Unknown]
